FAERS Safety Report 9241053 (Version 2)
Quarter: 2013Q2

REPORT INFORMATION
  Report Type: Spontaneous
  Country: US (occurrence: US)
  Receive Date: 20130419
  Receipt Date: 20130513
  Transmission Date: 20140414
  Serious: Yes (Hospitalization)
  Sender: FDA-Public Use
  Company Number: US-BIOGENIDEC-2013BI034635

PATIENT
  Sex: Female

DRUGS (3)
  1. AVONEX [Suspect]
     Indication: MULTIPLE SCLEROSIS
     Route: 030
     Dates: start: 19970101
  2. COPAXONE [Concomitant]
  3. TECFIDERA [Concomitant]
     Dates: start: 20130501

REACTIONS (3)
  - Foot fracture [Not Recovered/Not Resolved]
  - Hot flush [Recovered/Resolved]
  - Headache [Recovered/Resolved]
